FAERS Safety Report 7260198-7 (Version None)
Quarter: 2011Q1

REPORT INFORMATION
  Report Type: 
  Country: None (occurrence: None)
  Receive Date: 20110130
  Receipt Date: 20101003
  Transmission Date: 20110831
  Serious: No
  Sender: FDA-Public Use
  Company Number: US-ABBOTT-10P-163-0676886-00

PATIENT
  Age: 63 Year
  Sex: Female

DRUGS (9)
  1. VYVANSE [Concomitant]
     Indication: PRODUCT USED FOR UNKNOWN INDICATION
  2. HUMIRA [Suspect]
     Indication: RHEUMATOID ARTHRITIS
     Dates: start: 20100701
  3. HYDROCODONE [Concomitant]
     Indication: PAIN
  4. LAVOXYL [Concomitant]
     Indication: PRODUCT USED FOR UNKNOWN INDICATION
  5. POTASSIUM [Concomitant]
     Indication: PRODUCT USED FOR UNKNOWN INDICATION
  6. FOLIC ACID [Concomitant]
     Indication: PRODUCT USED FOR UNKNOWN INDICATION
  7. LAFLUDIMINE [Concomitant]
     Indication: PRODUCT USED FOR UNKNOWN INDICATION
  8. ATENOLOL [Concomitant]
     Indication: PRODUCT USED FOR UNKNOWN INDICATION
  9. VITAMIN D [Concomitant]
     Indication: PRODUCT USED FOR UNKNOWN INDICATION

REACTIONS (7)
  - CHOLELITHIASIS [None]
  - JOINT SWELLING [None]
  - LACERATION [None]
  - BACK PAIN [None]
  - FALL [None]
  - INJURY [None]
  - CONTUSION [None]
